FAERS Safety Report 18639915 (Version 1)
Quarter: 2020Q4

REPORT INFORMATION
  Report Type: Spontaneous
  Country: US (occurrence: US)
  Receive Date: 20201220
  Receipt Date: 20201220
  Transmission Date: 20210114
  Serious: Yes (Other)
  Sender: FDA-Public Use
  Company Number: US-PACIRA-202000012

PATIENT

DRUGS (1)
  1. EXPAREL [Suspect]
     Active Substance: BUPIVACAINE
     Indication: INGUINAL HERNIA REPAIR
     Dosage: DOSE NOT PROVIDED
     Route: 065
     Dates: start: 20200120, end: 20200120

REACTIONS (1)
  - Omphalitis [Unknown]
